FAERS Safety Report 24693232 (Version 1)
Quarter: 2024Q4

REPORT INFORMATION
  Report Type: Spontaneous
  Country: CZ (occurrence: CZ)
  Receive Date: 20241203
  Receipt Date: 20241203
  Transmission Date: 20250115
  Serious: Yes (Other)
  Sender: MERCK
  Company Number: CZ-009507513-2411CZE011795

PATIENT
  Sex: Male
  Weight: 94 kg

DRUGS (1)
  1. METFORMIN HYDROCHLORIDE\SITAGLIPTIN PHOSPHATE [Suspect]
     Active Substance: METFORMIN HYDROCHLORIDE\SITAGLIPTIN PHOSPHATE
     Indication: Type 2 diabetes mellitus
     Dosage: 50/850 MILLIGRAM TABLET, 1-0-1
     Route: 048

REACTIONS (1)
  - Diabetic metabolic decompensation [Recovered/Resolved]
